FAERS Safety Report 9918463 (Version 1)
Quarter: 2014Q1

REPORT INFORMATION
  Report Type: Spontaneous
  Country: US (occurrence: US)
  Receive Date: 20140224
  Receipt Date: 20140224
  Transmission Date: 20141002
  Serious: No
  Sender: FDA-Public Use
  Company Number: US-BIOGENIDEC-2014BI003590

PATIENT
  Age: 53 Year
  Sex: Female
  Weight: 98 kg

DRUGS (19)
  1. TECFIDERA [Suspect]
     Indication: PRODUCT USED FOR UNKNOWN INDICATION
     Dates: start: 201312
  2. AMPYRA [Concomitant]
     Indication: MULTIPLE SCLEROSIS
     Route: 048
     Dates: end: 20140201
  3. AMPYRA [Concomitant]
     Indication: GAIT DISTURBANCE
     Route: 048
     Dates: end: 20140201
  4. FUROSEMIDE [Concomitant]
  5. VOLTAREN [Concomitant]
  6. DIOVAN [Concomitant]
  7. CARVEDILOL [Concomitant]
  8. SIMVASTATIN [Concomitant]
  9. PRILOSEC [Concomitant]
  10. SPIRONOLACTON [Concomitant]
  11. PROZAC [Concomitant]
  12. WARFARIN [Concomitant]
  13. COMBIVENT [Concomitant]
  14. BABY ASPIRIN [Concomitant]
  15. MAGNESIUM [Concomitant]
  16. COENZYME Q10 [Concomitant]
  17. FISH OIL [Concomitant]
  18. VITAMIN D3 [Concomitant]
  19. POTASSIUM [Concomitant]

REACTIONS (5)
  - Multiple sclerosis relapse [Not Recovered/Not Resolved]
  - Flushing [Recovered/Resolved]
  - Hot flush [Unknown]
  - Vomiting [Recovered/Resolved]
  - Nausea [Recovered/Resolved]
